FAERS Safety Report 7470375-8 (Version None)
Quarter: 2011Q2

REPORT INFORMATION
  Report Type: 
  Country: None (occurrence: None)
  Receive Date: 20110510
  Receipt Date: 20110504
  Transmission Date: 20111010
  Serious: Yes (Hospitalization)
  Sender: FDA-Public Use
  Company Number: US-BAYER-2011-016711

PATIENT
  Age: 67 Year
  Sex: Male

DRUGS (9)
  1. XIFAXAN [Concomitant]
     Indication: DIARRHOEA
     Dosage: DAILY DOSE 550 MG
     Route: 048
     Dates: start: 20100930
  2. LASIX [Concomitant]
     Indication: FLUID RETENTION
  3. OMEPRAZOLE [Concomitant]
     Indication: GASTROOESOPHAGEAL REFLUX DISEASE
     Dosage: DAILY DOSE 20 MG
     Route: 048
     Dates: start: 20100930
  4. ALDACTONE [Concomitant]
     Indication: DIURETIC THERAPY
     Dosage: UNK
     Route: 048
     Dates: start: 20101019
  5. NEXAVAR [Suspect]
     Indication: HEPATIC NEOPLASM MALIGNANT
     Dosage: 400 MG, BID
     Route: 048
     Dates: start: 20100917, end: 20101103
  6. ZOFRAN [Concomitant]
     Indication: NAUSEA
     Dosage: DAILY DOSE 8 MG
     Route: 048
     Dates: start: 20100930
  7. SERTRALINE [Concomitant]
     Indication: ANTIDEPRESSANT THERAPY
     Dosage: DAILY DOSE 100 MG
     Route: 048
     Dates: start: 20100930
  8. LASIX [Concomitant]
     Indication: DIURETIC THERAPY
     Dosage: DAILY DOSE 20 MG
     Route: 048
     Dates: start: 20100930
  9. NADOLOL [Concomitant]
     Indication: HYPERTENSION
     Dosage: DAILY DOSE 40 MG
     Route: 048
     Dates: start: 20101019

REACTIONS (3)
  - DIARRHOEA [None]
  - HEPATIC ENCEPHALOPATHY [None]
  - DEHYDRATION [None]
